FAERS Safety Report 16497417 (Version 1)
Quarter: 2019Q2

REPORT INFORMATION
  Report Type: Report from Study
  Country: FR (occurrence: FR)
  Receive Date: 20190628
  Receipt Date: 20190628
  Transmission Date: 20190711
  Serious: Yes (Other)
  Sender: FDA-Public Use
  Company Number: FR-REGENERON PHARMACEUTICALS, INC.-2019-39800

PATIENT

DRUGS (2)
  1. CEMIPLIMAB [Suspect]
     Active Substance: CEMIPLIMAB
     Dosage: 3 MG/KG, QOW
     Route: 042
     Dates: start: 20190311, end: 20190311
  2. CEMIPLIMAB [Suspect]
     Active Substance: CEMIPLIMAB
     Indication: SQUAMOUS CELL CARCINOMA OF SKIN
     Dosage: 3 MG/KG, QOW
     Route: 042
     Dates: start: 20190311, end: 20190419

REACTIONS (1)
  - Hepatotoxicity [Unknown]

NARRATIVE: CASE EVENT DATE: 20190506
